FAERS Safety Report 6836160-2 (Version None)
Quarter: 2010Q3

REPORT INFORMATION
  Report Type: 
  Country: None (occurrence: None)
  Receive Date: 20100713
  Receipt Date: 20100630
  Transmission Date: 20110219
  Serious: Yes (Hospitalization, Other)
  Sender: FDA-Public Use
  Company Number: JP-PFIZER INC-2009248711

PATIENT
  Age: 47 Year
  Sex: Female

DRUGS (1)
  1. SALAZOPYRIN [Suspect]
     Indication: COLITIS ULCERATIVE
     Dosage: UNK
     Route: 048

REACTIONS (3)
  - ALOPECIA [None]
  - EOSINOPHILIA [None]
  - PULMONARY EOSINOPHILIA [None]
